FAERS Safety Report 20789983 (Version 1)
Quarter: 2022Q2

REPORT INFORMATION
  Report Type: Spontaneous
  Country: US (occurrence: US)
  Receive Date: 20220505
  Receipt Date: 20220505
  Transmission Date: 20220721
  Serious: Yes (Hospitalization, Other)
  Sender: FDA-Public Use
  Company Number: US-MLMSERVICE-20220421-3513167-1

PATIENT
  Age: 56 Year
  Sex: Male

DRUGS (3)
  1. AMIKACIN [Suspect]
     Active Substance: AMIKACIN
     Indication: Mycobacterium kansasii infection
     Dosage: UNKNOWN
     Route: 055
  2. RIFAMPIN [Concomitant]
     Active Substance: RIFAMPIN
     Indication: Mycobacterium kansasii infection
     Dosage: UNKNOWN
     Route: 065
  3. CLARITHROMYCIN [Concomitant]
     Active Substance: CLARITHROMYCIN
     Indication: Mycobacterium kansasii infection
     Dosage: UNKNOWN
     Route: 065

REACTIONS (1)
  - Bronchospasm [Unknown]
